FAERS Safety Report 4274725-5 (Version None)
Quarter: 2004Q1

REPORT INFORMATION
  Report Type: 
  Country: None (occurrence: None)
  Receive Date: 20040115
  Receipt Date: 20040106
  Transmission Date: 20041129
  Serious: Yes (Life-Threatening, Hospitalization, Disabling)
  Sender: FDA-Public Use
  Company Number: GB-JNJFOC-20040101337

PATIENT
  Age: 67 Year
  Sex: Male
  Weight: 80 kg

DRUGS (5)
  1. RISPERDAL [Suspect]
     Indication: SCHIZOPHRENIA
     Dosage: 6-8 MG DAILY
     Dates: end: 20031209
  2. LOFEPRAMINE (LOFEPRAMINE) [Concomitant]
  3. ORPHENADRINE CITRATE [Concomitant]
  4. LITHIUM CARBONATE [Concomitant]
  5. ACETAMINOPHEN [Concomitant]

REACTIONS (2)
  - CEREBROVASCULAR ACCIDENT [None]
  - THERMAL BURN [None]
